FAERS Safety Report 16688782 (Version 1)
Quarter: 2019Q3

REPORT INFORMATION
  Report Type: Spontaneous
  Country: GB (occurrence: GB)
  Receive Date: 20190809
  Receipt Date: 20190809
  Transmission Date: 20191004
  Serious: Yes (Hospitalization)
  Sender: FDA-Public Use
  Company Number: GB-PFIZER INC-2019338647

PATIENT
  Age: 85 Year
  Sex: Female

DRUGS (3)
  1. TRAMADOL. [Suspect]
     Active Substance: TRAMADOL
     Indication: PAIN
     Dosage: 50 MG, 3X/DAY
     Route: 048
     Dates: start: 20190401, end: 20190612
  2. GABAPENTIN. [Suspect]
     Active Substance: GABAPENTIN
     Indication: PAIN
     Dosage: 100 MG, 1X/DAY(AT NIGHT)
     Route: 048
     Dates: start: 20190612, end: 20190612
  3. OMEPRAZOLE. [Suspect]
     Active Substance: OMEPRAZOLE
     Indication: GASTROOESOPHAGEAL REFLUX DISEASE
     Dosage: 20 MG, 1X/DAY
     Route: 048
     Dates: start: 20190606, end: 20190612

REACTIONS (4)
  - Somnolence [Recovering/Resolving]
  - Hyponatraemia [Recovering/Resolving]
  - Lethargy [Recovering/Resolving]
  - Confusional state [Unknown]

NARRATIVE: CASE EVENT DATE: 20190612
